FAERS Safety Report 6821101-4 (Version None)
Quarter: 2010Q3

REPORT INFORMATION
  Report Type: 
  Country: None (occurrence: None)
  Receive Date: 20100707
  Receipt Date: 20080121
  Transmission Date: 20110219
  Serious: No
  Sender: FDA-Public Use
  Company Number: US-PFIZER INC-2008006986

PATIENT
  Sex: Female
  Weight: 61.23 kg

DRUGS (2)
  1. ZOLOFT [Suspect]
     Indication: PANIC DISORDER
     Dates: start: 20080109
  2. ZOLOFT [Suspect]
     Indication: ANXIETY

REACTIONS (1)
  - RASH [None]
